FAERS Safety Report 19310712 (Version 4)
Quarter: 2021Q3

REPORT INFORMATION
  Report Type: Report from Study
  Country: US (occurrence: US)
  Receive Date: 20210526
  Receipt Date: 20210726
  Transmission Date: 20211014
  Serious: Yes (Death, Hospitalization, Other)
  Sender: FDA-Public Use
  Company Number: US-ROCHE-2769578

PATIENT
  Age: 70 Year
  Sex: Male
  Weight: 99.8 kg

DRUGS (2)
  1. OBINUTUZUMAB. [Suspect]
     Active Substance: OBINUTUZUMAB
     Indication: FOLLICULAR LYMPHOMA
     Dosage: 1000MG IV ON DAY 1?DATE OF LAST DOSE ADMINISTERED PRIOR TO ONSET OF SAE ON 15/JAN/2021
     Route: 042
     Dates: start: 20200107
  2. LENALIDOMIDE [Suspect]
     Active Substance: LENALIDOMIDE
     Indication: FOLLICULAR LYMPHOMA
     Dosage: DAYS 1?21?DATE OF LAST DOSE ADMINISTERED PRIOR TO ONSET OF SAE ON 04/FEB/2021.
     Route: 048
     Dates: start: 20200113

REACTIONS (5)
  - Febrile neutropenia [Unknown]
  - COVID-19 [Fatal]
  - Lymphocyte count decreased [Unknown]
  - Neutropenia [Unknown]
  - White blood cell count decreased [Unknown]

NARRATIVE: CASE EVENT DATE: 20210501
